FAERS Safety Report 9526013 (Version 1)
Quarter: 2013Q3

REPORT INFORMATION
  Report Type: Spontaneous
  Country: IE (occurrence: IE)
  Receive Date: 20130916
  Receipt Date: 20130916
  Transmission Date: 20140515
  Serious: Yes (Life-Threatening)
  Sender: FDA-Public Use
  Company Number: IE-ROXANE LABORATORIES, INC.-2013-RO-01513RO

PATIENT
  Age: 45 Year
  Sex: Female

DRUGS (2)
  1. METHOTREXATE [Suspect]
     Indication: SERONEGATIVE ARTHRITIS
  2. CORTICOSTEROIDS [Suspect]
     Indication: SERONEGATIVE ARTHRITIS

REACTIONS (3)
  - Necrotising fasciitis [Recovered/Resolved]
  - Escherichia infection [Recovered/Resolved]
  - Sepsis [Recovered/Resolved]
